FAERS Safety Report 5131882-6 (Version None)
Quarter: 2006Q4

REPORT INFORMATION
  Report Type: 
  Country: None (occurrence: None)
  Receive Date: 20061016
  Receipt Date: 20061002
  Transmission Date: 20070319
  Serious: Yes (Other)
  Sender: FDA-Public Use
  Company Number: 2006119561

PATIENT
  Sex: Male

DRUGS (1)
  1. GEODON [Suspect]
     Dosage: 40 MG (40 MG, 1 IN 1 D)
     Dates: start: 20040101

REACTIONS (26)
  - ABDOMINAL PAIN UPPER [None]
  - ALOPECIA [None]
  - ANTIBODY TEST POSITIVE [None]
  - ANXIETY [None]
  - ARTHROPATHY [None]
  - BONE DISORDER [None]
  - CHEST PAIN [None]
  - DEPRESSION [None]
  - DIVERTICULITIS [None]
  - DYSPNOEA [None]
  - EYE DISORDER [None]
  - FEELING ABNORMAL [None]
  - GASTRITIS EROSIVE [None]
  - GASTROINTESTINAL DISORDER [None]
  - GINGIVAL BLEEDING [None]
  - HAEMORRHOIDS [None]
  - HYPOAESTHESIA [None]
  - LUPUS-LIKE SYNDROME [None]
  - MUCOUS MEMBRANE DISORDER [None]
  - NERVE INJURY [None]
  - RASH [None]
  - RECTAL HAEMORRHAGE [None]
  - RENAL DISORDER [None]
  - T-LYMPHOCYTE COUNT DECREASED [None]
  - WEIGHT DECREASED [None]
  - WHITE BLOOD CELL COUNT DECREASED [None]
